FAERS Safety Report 15882090 (Version 2)
Quarter: 2019Q2

REPORT INFORMATION
  Report Type: Spontaneous
  Country: US (occurrence: US)
  Receive Date: 20190128
  Receipt Date: 20190405
  Transmission Date: 20190711
  Serious: Yes (Hospitalization)
  Sender: FDA-Public Use
  Company Number: US-OTSUKA-2018_025271

PATIENT
  Sex: Female

DRUGS (6)
  1. ABILIFY [Suspect]
     Active Substance: ARIPIPRAZOLE
     Indication: PRODUCT USED FOR UNKNOWN INDICATION
     Dosage: UNK
     Route: 065
     Dates: end: 20121201
  2. ABILIFY MAINTENA [Suspect]
     Active Substance: ARIPIPRAZOLE
     Indication: ANXIETY
  3. ABILIFY MAINTENA [Suspect]
     Active Substance: ARIPIPRAZOLE
     Indication: MAJOR DEPRESSION
  4. ABILIFY MAINTENA [Suspect]
     Active Substance: ARIPIPRAZOLE
     Indication: OBSESSIVE-COMPULSIVE DISORDER
     Dosage: 400 MG, UNK
     Route: 065
     Dates: start: 201301, end: 201712
  5. ABILIFY MAINTENA [Suspect]
     Active Substance: ARIPIPRAZOLE
     Indication: BIPOLAR DISORDER
  6. ARIPIPRAZOLE. [Concomitant]
     Active Substance: ARIPIPRAZOLE
     Indication: PRODUCT USED FOR UNKNOWN INDICATION
     Dosage: UNK
     Route: 065
     Dates: start: 20150814

REACTIONS (11)
  - Impulse-control disorder [Unknown]
  - Compulsive shopping [Not Recovered/Not Resolved]
  - Trichotillomania [Not Recovered/Not Resolved]
  - Dermatillomania [Not Recovered/Not Resolved]
  - Obsessive-compulsive disorder [Unknown]
  - Eating disorder [Not Recovered/Not Resolved]
  - Economic problem [Unknown]
  - Mental disorder [Unknown]
  - Gambling disorder [Not Recovered/Not Resolved]
  - Product use in unapproved indication [Unknown]
  - Loss of employment [Unknown]

NARRATIVE: CASE EVENT DATE: 2013
